FAERS Safety Report 18615349 (Version 1)
Quarter: 2020Q4

REPORT INFORMATION
  Report Type: Report from Study
  Country: None (occurrence: PL)
  Receive Date: 20201214
  Receipt Date: 20201214
  Transmission Date: 20210114
  Serious: Yes (Hospitalization)
  Sender: FDA-Public Use
  Company Number: PL-ABBVIE-20K-129-3683332-00

PATIENT
  Sex: Female

DRUGS (3)
  1. CIPROFLOXACIN. [Concomitant]
     Active Substance: CIPROFLOXACIN
     Indication: PRODUCT USED FOR UNKNOWN INDICATION
     Route: 042
     Dates: start: 20201127, end: 20201205
  2. DUODOPA [Suspect]
     Active Substance: CARBIDOPA\LEVODOPA
     Indication: PARKINSON^S DISEASE
     Route: 050
  3. DUODOPA [Suspect]
     Active Substance: CARBIDOPA\LEVODOPA

REACTIONS (7)
  - Hypotension [Unknown]
  - Delirium [Recovered/Resolved]
  - On and off phenomenon [Unknown]
  - Dehydration [Unknown]
  - Wrong technique in device usage process [Recovered/Resolved]
  - Urinary tract inflammation [Unknown]
  - Skin abrasion [Unknown]

NARRATIVE: CASE EVENT DATE: 2020
